FAERS Safety Report 13014314 (Version 3)
Quarter: 2017Q1

REPORT INFORMATION
  Report Type: Report from Study
  Country: US (occurrence: US)
  Receive Date: 20161209
  Receipt Date: 20170302
  Transmission Date: 20170428
  Serious: Yes (Hospitalization, Other)
  Sender: FDA-Public Use
  Company Number: US-BIOGEN-2015BI152841

PATIENT
  Age: 29 Year
  Sex: Female

DRUGS (7)
  1. TYSABRI [Suspect]
     Active Substance: NATALIZUMAB
     Route: 065
     Dates: end: 201510
  2. ALBUTEROL MDI [Concomitant]
     Active Substance: ALBUTEROL
     Indication: ASTHMA
     Route: 065
  3. TYSABRI [Suspect]
     Active Substance: NATALIZUMAB
     Indication: MULTIPLE SCLEROSIS
     Dosage: INFUSED OVER 1 HOUR
     Route: 042
     Dates: start: 20140409, end: 20151125
  4. TERBUTALINE [Concomitant]
     Active Substance: TERBUTALINE
     Indication: PRODUCT USED FOR UNKNOWN INDICATION
     Route: 065
  5. PRENATAL VITAMINS [Concomitant]
     Active Substance: VITAMINS
     Indication: PREGNANCY
     Route: 065
  6. PERCOCET [Concomitant]
     Active Substance: ACETAMINOPHEN\OXYCODONE HYDROCHLORIDE
     Indication: PRODUCT USED FOR UNKNOWN INDICATION
     Route: 065
  7. PITOCIN [Concomitant]
     Active Substance: OXYTOCIN
     Indication: PRODUCT USED FOR UNKNOWN INDICATION
     Route: 065

REACTIONS (4)
  - Maternal exposure during pregnancy [Recovered/Resolved]
  - Nonreassuring foetal heart rate pattern [Recovered/Resolved]
  - Foetal heart rate deceleration abnormality [Recovered/Resolved]
  - Placenta praevia [Recovered/Resolved]

NARRATIVE: CASE EVENT DATE: 20160126
